FAERS Safety Report 4299393-8 (Version None)
Quarter: 2004Q1

REPORT INFORMATION
  Report Type: 
  Country: None (occurrence: None)
  Receive Date: 20040217
  Receipt Date: 20040129
  Transmission Date: 20041129
  Serious: Yes (Hospitalization)
  Sender: FDA-Public Use
  Company Number: 188259

PATIENT
  Age: 37 Year
  Sex: Female

DRUGS (9)
  1. AVONEX [Suspect]
     Indication: MULTIPLE SCLEROSIS
     Dosage: 30 MCG QW IM
     Route: 030
     Dates: start: 20030920
  2. URECHOLINE [Concomitant]
  3. COLACE [Concomitant]
  4. BACLOFEN [Concomitant]
  5. DETROL [Concomitant]
  6. PAXIL [Concomitant]
  7. VIOXX [Concomitant]
  8. PROTONIX [Concomitant]
  9. OXYCODONE HCL [Concomitant]

REACTIONS (3)
  - ASEPTIC NECROSIS BONE [None]
  - CONDITION AGGRAVATED [None]
  - MULTIPLE SCLEROSIS [None]
